FAERS Safety Report 4266006-0 (Version None)
Quarter: 2004Q1

REPORT INFORMATION
  Report Type: 
  Country: None (occurrence: None)
  Receive Date: 20040106
  Receipt Date: 20031210
  Transmission Date: 20041129
  Serious: Yes (Other)
  Sender: FDA-Public Use
  Company Number: M2003.6668

PATIENT
  Age: 66 Year
  Sex: Male

DRUGS (4)
  1. RIMACTANE [Suspect]
     Indication: DISSEMINATED TUBERCULOSIS
     Dosage: 0.45 G/D, ORAL
     Route: 048
     Dates: start: 20000810, end: 20000817
  2. ISONIAZID [Concomitant]
  3. ETHAMBUTOL HCL [Concomitant]
  4. PREDNISOLONE [Concomitant]

REACTIONS (2)
  - AGRANULOCYTOSIS [None]
  - RASH [None]
